FAERS Safety Report 10227562 (Version 2)
Quarter: 2014Q2

REPORT INFORMATION
  Report Type: Spontaneous
  Country: TR (occurrence: TR)
  Receive Date: 20140610
  Receipt Date: 20140623
  Transmission Date: 20141212
  Serious: Yes (Death)
  Sender: FDA-Public Use
  Company Number: PHHY2014TR069804

PATIENT
  Sex: Male

DRUGS (3)
  1. CATAFLAM [Suspect]
     Indication: PAIN
     Dosage: UNK UKN, UNK
  2. DICLOMEC [Suspect]
  3. ARVELES [Concomitant]
     Indication: PAIN
     Dosage: UNK UKN, UNK

REACTIONS (2)
  - Anaphylactic shock [Fatal]
  - Drug hypersensitivity [Fatal]
